FAERS Safety Report 4910734-8 (Version None)
Quarter: 2006Q1

REPORT INFORMATION
  Report Type: 
  Country: None (occurrence: None)
  Receive Date: 20060209
  Receipt Date: 20060209
  Transmission Date: 20060701
  Serious: Yes (Hospitalization, Other)
  Sender: FDA-Public Use
  Company Number: None

PATIENT
  Sex: Male
  Weight: 107.2 kg

DRUGS (2)
  1. CARBOPLATIN [Suspect]
     Indication: NON-SMALL CELL LUNG CANCER
     Dosage: 2172 MG
     Dates: start: 20051024, end: 20051128
  2. TAXOL [Suspect]
     Dosage: 675 MG
     Dates: start: 20051024, end: 20051128

REACTIONS (2)
  - EMPHYSEMA [None]
  - PNEUMOTHORAX [None]
